FAERS Safety Report 10144816 (Version 1)
Quarter: 2014Q2

REPORT INFORMATION
  Report Type: Spontaneous
  Country: US (occurrence: US)
  Receive Date: 20140430
  Receipt Date: 20140430
  Transmission Date: 20141212
  Serious: No
  Sender: FDA-Public Use
  Company Number: US-SA-2014SA005499

PATIENT
  Age: 82 Year
  Sex: Male

DRUGS (2)
  1. LOVENOX [Suspect]
     Route: 065
     Dates: start: 20131227
  2. ASA [Suspect]
     Route: 065

REACTIONS (4)
  - Blood pressure decreased [Not Recovered/Not Resolved]
  - Fatigue [Unknown]
  - Hyponatraemia [Unknown]
  - Dysphagia [Unknown]
